FAERS Safety Report 13527570 (Version 1)
Quarter: 2017Q2

REPORT INFORMATION
  Report Type: Spontaneous
  Country: AU (occurrence: AU)
  Receive Date: 20170509
  Receipt Date: 20170509
  Transmission Date: 20170830
  Serious: No
  Sender: FDA-Public Use
  Company Number: AU-009507513-1604AUS009172

PATIENT
  Sex: Male

DRUGS (1)
  1. NOVASONE [Suspect]
     Active Substance: MOMETASONE FUROATE
     Dosage: UNK
     Route: 047

REACTIONS (3)
  - No adverse event [Unknown]
  - Exposure via eye contact [Unknown]
  - Incorrect route of drug administration [Unknown]
